FAERS Safety Report 5379969-7 (Version None)
Quarter: 2007Q3

REPORT INFORMATION
  Report Type: 
  Country: None (occurrence: None)
  Receive Date: 20070706
  Receipt Date: 20070627
  Transmission Date: 20080115
  Serious: Yes (Hospitalization)
  Sender: FDA-Public Use
  Company Number: US-JNJFOC-20070700012

PATIENT
  Sex: Female
  Weight: 70.76 kg

DRUGS (4)
  1. DURAGESIC-100 [Suspect]
     Indication: PAIN
     Route: 062
  2. FLEXERIL [Concomitant]
     Indication: PAIN
     Route: 048
  3. VICODIN ES [Concomitant]
     Indication: PAIN
     Route: 048
  4. PROZAC [Concomitant]
     Indication: DEPRESSION
     Route: 048

REACTIONS (5)
  - EUPHORIC MOOD [None]
  - INCORRECT DRUG ADMINISTRATION RATE [None]
  - OVARIAN CYST RUPTURED [None]
  - PRURITUS [None]
  - TINNITUS [None]
